FAERS Safety Report 17651613 (Version 1)
Quarter: 2020Q2

REPORT INFORMATION
  Report Type: Spontaneous
  Country: US (occurrence: US)
  Receive Date: 20200408
  Receipt Date: 20200408
  Transmission Date: 20200713
  Serious: No
  Sender: FDA-Public Use
  Company Number: None

PATIENT
  Age: 74 Year
  Sex: Male
  Weight: 112 kg

DRUGS (1)
  1. INSULIN [Suspect]
     Active Substance: INSULIN NOS
     Indication: DIABETES MELLITUS
     Dosage: ?          OTHER STRENGTH:300UNIT/ML 3ML;?
     Dates: start: 20200124, end: 20200323

REACTIONS (1)
  - Hypertension [None]

NARRATIVE: CASE EVENT DATE: 20200323
